FAERS Safety Report 6636386-7 (Version None)
Quarter: 2010Q1

REPORT INFORMATION
  Report Type: 
  Country: None (occurrence: None)
  Receive Date: 20100316
  Receipt Date: 20100311
  Transmission Date: 20100710
  Serious: Yes (Death)
  Sender: FDA-Public Use
  Company Number: MX-ROCHE-690675

PATIENT
  Age: 21 Year
  Sex: Male

DRUGS (1)
  1. MIRCERA [Suspect]
     Dosage: FREQUENCY REPORTED AS SINGLE DOSE.
     Route: 065
     Dates: start: 20100309, end: 20100309

REACTIONS (1)
  - MYOCARDIAL INFARCTION [None]
